FAERS Safety Report 7449257-3 (Version None)
Quarter: 2011Q2

REPORT INFORMATION
  Report Type: 
  Country: None (occurrence: None)
  Receive Date: 20110502
  Receipt Date: 20110329
  Transmission Date: 20111010
  Serious: Yes (Hospitalization, Other)
  Sender: FDA-Public Use
  Company Number: US-BAYER-201037016NA

PATIENT
  Age: 31 Year
  Sex: Female
  Weight: 100.68 kg

DRUGS (8)
  1. CALCIUM [Concomitant]
  2. YASMIN [Suspect]
     Indication: ACNE
     Dosage: UNK UNK, UNK
     Route: 048
     Dates: start: 20030601, end: 20050214
  3. EFFEXOR [Concomitant]
  4. YASMIN [Suspect]
     Indication: PREMENSTRUAL SYNDROME
  5. KLONOPIN [Concomitant]
  6. COUMADIN [Concomitant]
     Dosage: UNK
  7. LOVENOX [Concomitant]
  8. MULTI-VITAMINS [Concomitant]

REACTIONS (4)
  - EMOTIONAL DISTRESS [None]
  - DEEP VEIN THROMBOSIS [None]
  - PULMONARY EMBOLISM [None]
  - PAIN [None]
